FAERS Safety Report 9649439 (Version 1)
Quarter: 2013Q4

REPORT INFORMATION
  Report Type: Spontaneous
  Country: US (occurrence: US)
  Receive Date: 20131028
  Receipt Date: 20131028
  Transmission Date: 20140711
  Serious: No
  Sender: FDA-Public Use
  Company Number: US-BAYER-2013-129598

PATIENT
  Age: 18 Year
  Sex: Female
  Weight: 49.89 kg

DRUGS (3)
  1. ALEVE TABLET [Suspect]
     Indication: ARTHRALGIA
     Dosage: 1 DF, UNK
     Route: 048
     Dates: start: 201310
  2. CETIRIZINE [Concomitant]
  3. MICROGESTIN [Concomitant]
     Indication: CONTRACEPTION
     Route: 048

REACTIONS (6)
  - Abdominal discomfort [Not Recovered/Not Resolved]
  - Nausea [Not Recovered/Not Resolved]
  - Sneezing [Not Recovered/Not Resolved]
  - Incorrect drug administration duration [None]
  - Abdominal pain [Recovered/Resolved]
  - Inappropriate schedule of drug administration [None]
